FAERS Safety Report 4512955-5 (Version None)
Quarter: 2004Q4

REPORT INFORMATION
  Report Type: 
  Country: None (occurrence: None)
  Receive Date: 20041124
  Receipt Date: 20041115
  Transmission Date: 20050328
  Serious: Yes (Other)
  Sender: FDA-Public Use
  Company Number: 2004092802

PATIENT
  Age: 61 Year
  Sex: Female
  Weight: 69.4003 kg

DRUGS (2)
  1. BENADRYL (DIPHENHYDRAMINE) [Suspect]
     Indication: INSOMNIA
     Dosage: 1 TAB HS - REDUCED TO 1/2 TAB HS, ORAL
     Route: 048
     Dates: start: 20030501
  2. FEXOFENADINE HYDROCHLORIDE [Concomitant]

REACTIONS (1)
  - DRUG DEPENDENCE [None]
